FAERS Safety Report 16484849 (Version 1)
Quarter: 2019Q2

REPORT INFORMATION
  Report Type: Spontaneous
  Country: US (occurrence: US)
  Receive Date: 20190627
  Receipt Date: 20190627
  Transmission Date: 20190711
  Serious: No
  Sender: FDA-Public Use
  Company Number: US-GALDERMA-US18045293

PATIENT
  Age: 80 Year
  Sex: Female

DRUGS (7)
  1. ASPIRIN. [Concomitant]
     Active Substance: ASPIRIN
  2. PROACTIV DAILY PROTECTION PLUS SUNSCREEN SPF 30 [Concomitant]
     Route: 061
     Dates: start: 20180210, end: 20180224
  3. PROACTIV MD DAILY OIL CONTROL SPF 30 [Suspect]
     Active Substance: AVOBENZONE\OCTISALATE\OCTOCRYLENE
     Indication: PRODUCT USED FOR UNKNOWN INDICATION
     Route: 061
     Dates: start: 20180210, end: 20180224
  4. PROACTIV MOISTURE REPAIR [Concomitant]
     Active Substance: COSMETICS
     Route: 061
     Dates: start: 20180210, end: 20180224
  5. PROACTIV MD ADAPALENE ACNE TREATMENT [Suspect]
     Active Substance: ADAPALENE
     Indication: PRODUCT USED FOR UNKNOWN INDICATION
     Dosage: 0.1%
     Route: 061
     Dates: start: 20180210, end: 20180224
  6. PROACTIV EYE BRIGHTENING SERUM [Concomitant]
     Active Substance: COSMETICS
     Route: 061
     Dates: start: 20180210, end: 20180224
  7. PROACTIV MD DEEP CLEANSING FACE WASH [Concomitant]
     Active Substance: COSMETICS
     Route: 061
     Dates: start: 20180210, end: 20180224

REACTIONS (1)
  - Skin hyperpigmentation [Recovered/Resolved]

NARRATIVE: CASE EVENT DATE: 20180224
